FAERS Safety Report 10083483 (Version 1)
Quarter: 2014Q2

REPORT INFORMATION
  Report Type: Report from Study
  Country: US (occurrence: US)
  Receive Date: 20140417
  Receipt Date: 20140417
  Transmission Date: 20141212
  Serious: Yes (Other)
  Sender: FDA-Public Use
  Company Number: US-ROCHE-1381197

PATIENT
  Sex: Female
  Weight: 32.4 kg

DRUGS (1)
  1. NUTROPIN AQ [Suspect]
     Indication: GROWTH HORMONE DEFICIENCY
     Dosage: DAILY
     Route: 058

REACTIONS (5)
  - Nystagmus [Unknown]
  - Asthenia [Unknown]
  - Attention deficit/hyperactivity disorder [Unknown]
  - Exercise tolerance decreased [Unknown]
  - Limb injury [Unknown]
